FAERS Safety Report 16599121 (Version 2)
Quarter: 2019Q3

REPORT INFORMATION
  Report Type: Spontaneous
  Country: DE (occurrence: DE)
  Receive Date: 20190719
  Receipt Date: 20190807
  Transmission Date: 20191004
  Serious: Yes (Hospitalization, Other)
  Sender: FDA-Public Use
  Company Number: PHHY2019DE164016

PATIENT
  Age: 26 Year
  Sex: Female
  Weight: 60 kg

DRUGS (1)
  1. CLARITHROMYCIN HEXAL [Suspect]
     Active Substance: CLARITHROMYCIN
     Indication: PERTUSSIS
     Dosage: 500 MG, Q12H (2X500MG)
     Route: 048
     Dates: start: 20190703, end: 20190705

REACTIONS (9)
  - Suicidal ideation [Recovering/Resolving]
  - Panic attack [Unknown]
  - Fear of death [Unknown]
  - Sleep disorder [Recovering/Resolving]
  - Crying [Recovering/Resolving]
  - Anxiety [Unknown]
  - Panic disorder [Recovering/Resolving]
  - Hyperhidrosis [Unknown]
  - Anxiety [Recovering/Resolving]

NARRATIVE: CASE EVENT DATE: 20190704
